FAERS Safety Report 15888423 (Version 2)
Quarter: 2019Q1

REPORT INFORMATION
  Report Type: Spontaneous
  Country: US (occurrence: US)
  Receive Date: 20190130
  Receipt Date: 20190208
  Transmission Date: 20190417
  Serious: No
  Sender: FDA-Public Use
  Company Number: US-DRREDDYS-USA/USA/19/0106973

PATIENT
  Age: 20 Year
  Sex: Female
  Weight: 72.72 kg

DRUGS (1)
  1. NICOTINE. [Suspect]
     Active Substance: NICOTINE
     Indication: SMOKING CESSATION THERAPY
     Route: 062

REACTIONS (6)
  - Product quality issue [Unknown]
  - Expired product administered [Unknown]
  - Abnormal dreams [Recovered/Resolved]
  - Nicotine dependence [Unknown]
  - Treatment noncompliance [Unknown]
  - Drug ineffective [Unknown]
